FAERS Safety Report 9500814 (Version 3)
Quarter: 2013Q4

REPORT INFORMATION
  Report Type: Spontaneous
  Country: US (occurrence: None)
  Receive Date: 20130107
  Receipt Date: 20131226
  Transmission Date: 20140711
  Serious: Yes (Other)
  Sender: FDA-Public Use
  Company Number: PHEH2012US020164

PATIENT
  Age: 36 Year
  Sex: Female
  Weight: 72.6 kg

DRUGS (1)
  1. GILENYA [Suspect]
     Indication: MULTIPLE SCLEROSIS
     Route: 048
     Dates: start: 20121011

REACTIONS (13)
  - Fatigue [None]
  - Bacterial infection [None]
  - Weight decreased [None]
  - Nausea [None]
  - Pain [None]
  - Pyrexia [None]
  - Gait disturbance [None]
  - Malaise [None]
  - Nasopharyngitis [None]
  - Headache [None]
  - Asthenia [None]
  - Cough [None]
  - Rhinorrhoea [None]
